FAERS Safety Report 6547392-5 (Version None)
Quarter: 2010Q1

REPORT INFORMATION
  Report Type: 
  Country: None (occurrence: None)
  Receive Date: 20100122
  Receipt Date: 20100111
  Transmission Date: 20100710
  Serious: Yes (Other)
  Sender: FDA-Public Use
  Company Number: PHHY2009AT39346

PATIENT
  Age: 60 Year
  Sex: Male

DRUGS (1)
  1. TRILEPTAL [Suspect]
     Indication: TRIGEMINAL NEURALGIA
     Dosage: 300MG 2-4 TIMES DAILY

REACTIONS (3)
  - ARRHYTHMIA [None]
  - BRADYCARDIA [None]
  - EXTRASYSTOLES [None]
